FAERS Safety Report 10360940 (Version 1)
Quarter: 2014Q3

REPORT INFORMATION
  Report Type: Spontaneous
  Country: US (occurrence: US)
  Receive Date: 20140804
  Receipt Date: 20140804
  Transmission Date: 20150326
  Serious: Yes (Other)
  Sender: FDA-Public Use
  Company Number: US-PFIZER INC-2014214915

PATIENT
  Age: 50 Year
  Sex: Male
  Weight: 127.44 kg

DRUGS (3)
  1. LOSARTAN [Concomitant]
     Active Substance: LOSARTAN
     Dosage: UNK
  2. LYRICA [Suspect]
     Active Substance: PREGABALIN
     Indication: NEURALGIA
     Dosage: 75 MG, UNK
  3. HYDROCODONE [Concomitant]
     Active Substance: HYDROCODONE
     Indication: PAIN
     Dosage: UNK

REACTIONS (2)
  - Fungal infection [Unknown]
  - Drug ineffective [Unknown]
